FAERS Safety Report 5765014-8 (Version None)
Quarter: 2008Q2

REPORT INFORMATION
  Report Type: 
  Country: None (occurrence: None)
  Receive Date: 20080611
  Receipt Date: 20080530
  Transmission Date: 20081010
  Serious: Yes (Hospitalization)
  Sender: FDA-Public Use
  Company Number: TR-ELI_LILLY_AND_COMPANY-TR200806000489

PATIENT
  Sex: Male

DRUGS (2)
  1. HUMULIN R [Suspect]
     Indication: DIABETES MELLITUS
     Dosage: 10 U, AT NOON
     Route: 058
     Dates: start: 20070401
  2. HUMULIN N [Suspect]
     Indication: DIABETES MELLITUS
     Dosage: 10 U, MORNING AND EVENING
     Route: 058
     Dates: start: 20070401

REACTIONS (2)
  - BLOOD GLUCOSE FLUCTUATION [None]
  - INFLAMMATION [None]
